FAERS Safety Report 25281572 (Version 1)
Quarter: 2025Q2

REPORT INFORMATION
  Report Type: Spontaneous
  Country: GB (occurrence: GB)
  Receive Date: 20250508
  Receipt Date: 20250508
  Transmission Date: 20250717
  Serious: Yes (Other)
  Sender: ABBVIE
  Company Number: None

PATIENT
  Age: 49 Year
  Sex: Female

DRUGS (3)
  1. ATOGEPANT [Suspect]
     Active Substance: ATOGEPANT
     Indication: Migraine
     Route: 048
     Dates: start: 20250423, end: 20250423
  2. MAGNESIUM [Concomitant]
     Active Substance: MAGNESIUM
     Indication: Adverse drug reaction
  3. CITALOPRAM [Concomitant]
     Active Substance: CITALOPRAM
     Indication: Depression

REACTIONS (9)
  - Chest pain [Recovered/Resolved]
  - Swollen tongue [Unknown]
  - Pharyngeal swelling [Unknown]
  - Abdominal pain [Unknown]
  - Cognitive disorder [Unknown]
  - Slow speech [Unknown]
  - Bradykinesia [Unknown]
  - Chest discomfort [Unknown]
  - Muscle spasms [Unknown]

NARRATIVE: CASE EVENT DATE: 20250423
